FAERS Safety Report 7654020-4 (Version None)
Quarter: 2011Q3

REPORT INFORMATION
  Report Type: 
  Country: None (occurrence: None)
  Receive Date: 20110803
  Receipt Date: 20110721
  Transmission Date: 20111222
  Serious: Yes (Hospitalization)
  Sender: FDA-Public Use
  Company Number: PHHY2011US61646

PATIENT
  Sex: Female
  Weight: 46 kg

DRUGS (1)
  1. EXJADE [Suspect]
     Indication: BREAST CANCER
     Dosage: 750 MG, QD
     Route: 048
     Dates: start: 20110201, end: 20110601

REACTIONS (8)
  - PNEUMONIA [None]
  - NAUSEA [None]
  - SEPSIS [None]
  - DEHYDRATION [None]
  - ASTHENIA [None]
  - PYREXIA [None]
  - URINARY TRACT INFECTION [None]
  - CHILLS [None]
